FAERS Safety Report 8549350-8 (Version None)
Quarter: 2012Q3

REPORT INFORMATION
  Report Type: 
  Country: None (occurrence: None)
  Receive Date: 20120730
  Receipt Date: 20120725
  Transmission Date: 20120928
  Serious: Yes (Hospitalization)
  Sender: FDA-Public Use
  Company Number: DE-ROCHE-1065168

PATIENT
  Sex: Male
  Weight: 65 kg

DRUGS (8)
  1. ASPIRIN [Concomitant]
     Route: 048
  2. PEMETREXED [Concomitant]
     Indication: BRONCHIAL CARCINOMA
     Dates: start: 20111109
  3. NAPROXEN [Concomitant]
     Indication: PAIN IN EXTREMITY
     Route: 048
     Dates: start: 20120501
  4. PANTOPRAZOLE [Concomitant]
     Indication: PROPHYLAXIS
     Route: 048
  5. CISPLATIN [Concomitant]
     Indication: BRONCHIAL CARCINOMA
     Dates: start: 20111109
  6. AVASTIN [Suspect]
     Indication: NON-SMALL CELL LUNG CANCER
     Route: 042
     Dates: start: 20111109, end: 20120330
  7. AMPICILLIN AND SULBACTAM [Concomitant]
     Dosage: 1 DF
     Route: 048
     Dates: start: 20120510, end: 20120517
  8. PREDNISONE TAB [Concomitant]
     Route: 048
     Dates: start: 20120501

REACTIONS (6)
  - JOINT SWELLING [None]
  - ARTERIAL OCCLUSIVE DISEASE [None]
  - SKIN NECROSIS [None]
  - OEDEMA PERIPHERAL [None]
  - ARTHRALGIA [None]
  - PAIN IN EXTREMITY [None]
